FAERS Safety Report 6713286-5 (Version None)
Quarter: 2010Q2

REPORT INFORMATION
  Report Type: 
  Country: None (occurrence: None)
  Receive Date: 20100506
  Receipt Date: 20100426
  Transmission Date: 20101027
  Serious: Yes (Hospitalization)
  Sender: FDA-Public Use
  Company Number: JP-ROCHE-673007

PATIENT
  Sex: Female
  Weight: 50 kg

DRUGS (31)
  1. TOCILIZUMAB [Suspect]
     Indication: RHEUMATOID ARTHRITIS
     Route: 041
     Dates: start: 20090107, end: 20090107
  2. TOCILIZUMAB [Suspect]
     Route: 041
     Dates: start: 20090203, end: 20090203
  3. TOCILIZUMAB [Suspect]
     Route: 041
     Dates: start: 20090303, end: 20090303
  4. TOCILIZUMAB [Suspect]
     Route: 041
     Dates: start: 20090331, end: 20090331
  5. TOCILIZUMAB [Suspect]
     Route: 041
     Dates: start: 20090511, end: 20090511
  6. TOCILIZUMAB [Suspect]
     Route: 041
     Dates: start: 20090611, end: 20090611
  7. TOCILIZUMAB [Suspect]
     Route: 041
     Dates: start: 20090709, end: 20090709
  8. TOCILIZUMAB [Suspect]
     Route: 041
     Dates: start: 20090806, end: 20090806
  9. TOCILIZUMAB [Suspect]
     Route: 041
     Dates: start: 20090903, end: 20090903
  10. TOCILIZUMAB [Suspect]
     Route: 041
     Dates: start: 20091005, end: 20091005
  11. TOCILIZUMAB [Suspect]
     Route: 041
     Dates: start: 20091102, end: 20091102
  12. TOCILIZUMAB [Suspect]
     Route: 041
     Dates: start: 20091207
  13. CELECOXIB [Suspect]
     Indication: RHEUMATOID ARTHRITIS
     Route: 048
     Dates: start: 20080811
  14. ADALAT CC [Suspect]
     Indication: HYPERTENSION
     Dosage: FORM: SUSTAINED RELEASE TABLETS
     Route: 048
     Dates: start: 20070323
  15. CLARITHROMYCIN [Suspect]
     Indication: BRONCHITIS CHRONIC
     Dosage: DOSE FORM: PERORAL AGENT
     Route: 048
     Dates: start: 20051007, end: 20090301
  16. CLARITHROMYCIN [Suspect]
     Dosage: DOSE FORM: PERORAL AGENT
     Route: 048
     Dates: start: 20100104
  17. LASIX [Suspect]
     Indication: HYPERTENSION
     Dosage: DOSE FORM: PERORAL AGENT
     Route: 048
     Dates: start: 20051128
  18. CRAVIT [Suspect]
     Indication: BRONCHITIS CHRONIC
     Dosage: DOSE FORM: PERORAL AGENT
     Route: 048
     Dates: start: 20090302
  19. METHOTREXATE [Concomitant]
     Dosage: DOSE FORM: PERORAL AGENT
     Route: 048
     Dates: start: 20090127
  20. FLUTIDE DISKUS [Concomitant]
     Dosage: DRUG REPORTED AS: FLUTIDE:DISKUS ( FLUTICASONE PROPIONATE)
     Route: 055
     Dates: start: 20080204
  21. ALFAROL [Concomitant]
     Route: 048
     Dates: start: 20080811
  22. MYONAL [Concomitant]
     Dosage: DOSE FORM: PERORAL AGENT
     Route: 048
     Dates: start: 20080811
  23. MUCOSTA [Concomitant]
     Dosage: DOSE FORM: PERORAL AGENT
     Route: 048
     Dates: start: 20080811
  24. THEO-DUR [Concomitant]
     Dosage: DOSE FORM: PERORAL AGENT
     Route: 048
     Dates: start: 20051007
  25. MUCOSIL-10 [Concomitant]
     Dosage: DOSE FORM: PERORAL AGENT
     Route: 048
     Dates: start: 20051007
  26. SEREVENT [Concomitant]
     Route: 055
     Dates: start: 20080204
  27. FERROMIA [Concomitant]
     Dosage: DOSE FORM: PERORAL AGENT
     Route: 048
     Dates: start: 20090105, end: 20090202
  28. AZULENE SULFONATE SODIUM/L-GLUTAMINE [Concomitant]
     Route: 048
     Dates: start: 20070223
  29. BENET [Concomitant]
     Dosage: DRUG NAME: BENET (SODIUM RISEDRONATE HYDRATE)
     Route: 048
     Dates: start: 20080811
  30. THYRADIN S [Concomitant]
     Route: 048
     Dates: start: 20090706
  31. LIPITOR [Concomitant]
     Route: 048
     Dates: start: 20090706

REACTIONS (2)
  - ASTHMA [None]
  - PLATELET COUNT DECREASED [None]
